FAERS Safety Report 8762842 (Version 1)
Quarter: 2012Q4

REPORT INFORMATION
  Report Type: 
  Country: US (occurrence: US)
  Receive Date: 20120829
  Receipt Date: 20120829
  Transmission Date: 20130627
  Serious: No
  Sender: FDA-Public Use
  Company Number: US-PFIZER INC-2012208542

PATIENT
  Age: 38 Year
  Sex: Male
  Weight: 79.37 kg

DRUGS (4)
  1. NEURONTIN [Suspect]
     Indication: NEURALGIA
     Dosage: 600mg in morning and afternoon and 900mg at bed time
     Dates: end: 201207
  2. LYRICA [Suspect]
     Indication: DIABETIC NEUROPATHY
     Dosage: 75 mg, 3x/day
     Dates: start: 2012
  3. COZAAR [Concomitant]
     Indication: HYPERTENSION
     Dosage: 50 mg, daily
  4. TENORMIN [Concomitant]
     Indication: HYPERTENSION
     Dosage: 50 mg, daily

REACTIONS (3)
  - Drug ineffective [Unknown]
  - Pain in extremity [Not Recovered/Not Resolved]
  - Muscle spasms [Unknown]
